FAERS Safety Report 14453126 (Version 1)
Quarter: 2018Q1

REPORT INFORMATION
  Report Type: Spontaneous
  Country: JP (occurrence: JP)
  Receive Date: 20180129
  Receipt Date: 20180129
  Transmission Date: 20180509
  Serious: Yes (Other)
  Sender: FDA-Public Use
  Company Number: JP-009507513-1801JPN001953J

PATIENT
  Age: 81 Year
  Sex: Male

DRUGS (3)
  1. FERROMIA [Suspect]
     Active Substance: SODIUM FERROUS CITRATE
     Dosage: UNK
     Route: 050
  2. MENESIT TABLETS - 100 [Suspect]
     Active Substance: CARBIDOPA\LEVODOPA
     Indication: PARKINSON^S DISEASE
     Dosage: UNK
     Route: 048
  3. MENESIT TABLETS - 100 [Suspect]
     Active Substance: CARBIDOPA\LEVODOPA
     Dosage: UNK
     Route: 050

REACTIONS (2)
  - Product colour issue [Unknown]
  - Gastrostomy [Unknown]
